FAERS Safety Report 19292018 (Version 2)
Quarter: 2024Q1

REPORT INFORMATION
  Report Type: Spontaneous
  Country: US (occurrence: US)
  Receive Date: 20210524
  Receipt Date: 20240301
  Transmission Date: 20240410
  Serious: No
  Sender: FDA-Public Use
  Company Number: US-COHERUS BIOSCIENCES, INC - 2021US001239

PATIENT

DRUGS (6)
  1. UDENYCA [Suspect]
     Active Substance: PEGFILGRASTIM-CBQV
     Indication: Infection prophylaxis
     Dosage: UNK
  2. UDENYCA [Suspect]
     Active Substance: PEGFILGRASTIM-CBQV
     Dosage: UNK
     Dates: start: 20210302
  3. TAXOL [Concomitant]
     Active Substance: PACLITAXEL
     Dosage: UNK
  4. TAXOL [Concomitant]
     Active Substance: PACLITAXEL
     Dosage: UNK
     Dates: start: 20210301
  5. CARBOPLATIN [Concomitant]
     Active Substance: CARBOPLATIN
     Dosage: UNK
  6. CARBOPLATIN [Concomitant]
     Active Substance: CARBOPLATIN
     Dosage: UNK
     Dates: start: 20210301

REACTIONS (5)
  - Bone pain [Unknown]
  - Pain in extremity [Unknown]
  - Off label use [Unknown]
  - Intentional underdose [Unknown]
  - Constipation [Unknown]
